FAERS Safety Report 20425233 (Version 1)
Quarter: 2022Q1

REPORT INFORMATION
  Report Type: Spontaneous
  Country: US (occurrence: US)
  Receive Date: 20220204
  Receipt Date: 20220204
  Transmission Date: 20220423
  Serious: No
  Sender: FDA-Public Use
  Company Number: US-CELGENE-USA-20220106559

PATIENT
  Sex: Female
  Weight: 80.812 kg

DRUGS (2)
  1. POMALYST [Suspect]
     Active Substance: POMALIDOMIDE
     Indication: Plasma cell myeloma
     Dosage: 4 MILLIGRAM
     Route: 048
     Dates: start: 202005
  2. POMALYST [Suspect]
     Active Substance: POMALIDOMIDE
     Dosage: 4 MILLIGRAM
     Route: 048
     Dates: start: 202110

REACTIONS (9)
  - Feeling jittery [Unknown]
  - Dysphonia [Unknown]
  - Dysphemia [Unknown]
  - Alopecia [Unknown]
  - Pain in extremity [Unknown]
  - Dry skin [Unknown]
  - Abdominal distension [Unknown]
  - Tremor [Unknown]
  - Muscle spasms [Unknown]
